FAERS Safety Report 12170407 (Version 1)
Quarter: 2016Q1

REPORT INFORMATION
  Report Type: Spontaneous
  Country: US (occurrence: US)
  Receive Date: 20160311
  Receipt Date: 20160311
  Transmission Date: 20160526
  Serious: Yes (Other)
  Sender: FDA-Public Use
  Company Number: US-BEH-2016059614

PATIENT
  Sex: Male

DRUGS (2)
  1. PRIVIGEN [Suspect]
     Active Substance: HUMAN IMMUNOGLOBULIN G
     Dosage: FIRST DOSE ON THE END OF FALL 2015
     Route: 042
  2. PRIVIGEN [Suspect]
     Active Substance: HUMAN IMMUNOGLOBULIN G
     Indication: PRODUCT USED FOR UNKNOWN INDICATION
     Dosage: SECOND DOSE IN THE END OF FALL 2015
     Route: 042

REACTIONS (3)
  - Blood pressure increased [Unknown]
  - Cerebrovascular accident [Unknown]
  - Vascular stenosis [Unknown]

NARRATIVE: CASE EVENT DATE: 2015
